FAERS Safety Report 5472281-7 (Version None)
Quarter: 2007Q3

REPORT INFORMATION
  Report Type: 
  Country: None (occurrence: None)
  Receive Date: 20070925
  Receipt Date: 20070904
  Transmission Date: 20080115
  Serious: Yes (Death)
  Sender: FDA-Public Use
  Company Number: FRPFM-L-20070013

PATIENT
  Age: 72 Year
  Sex: Female

DRUGS (1)
  1. NAVELBINE [Suspect]
     Indication: NON-SMALL CELL LUNG CANCER
     Dosage: 25 MG/M2 IV
     Route: 042

REACTIONS (2)
  - PERFORMANCE STATUS DECREASED [None]
  - RESPIRATORY FAILURE [None]
